FAERS Safety Report 25453596 (Version 1)
Quarter: 2025Q2

REPORT INFORMATION
  Report Type: Spontaneous
  Country: JP (occurrence: JP)
  Receive Date: 20250619
  Receipt Date: 20250619
  Transmission Date: 20250716
  Serious: Yes (Other)
  Sender: Haleon PLC
  Company Number: JP-KENVUE-20250604345

PATIENT

DRUGS (1)
  1. NICORETTE [Suspect]
     Active Substance: NICOTINE
     Indication: Smoking cessation therapy
     Route: 048
     Dates: start: 2020

REACTIONS (3)
  - Incorrect product administration duration [Unknown]
  - Pain in jaw [Unknown]
  - Drug dependence [Not Recovered/Not Resolved]
